FAERS Safety Report 6198206-7 (Version None)
Quarter: 2009Q2

REPORT INFORMATION
  Report Type: 
  Country: None (occurrence: None)
  Receive Date: 20090521
  Receipt Date: 20090518
  Transmission Date: 20091009
  Serious: Yes (Hospitalization)
  Sender: FDA-Public Use
  Company Number: US-MERCK-0905USA02274

PATIENT
  Age: 58 Year
  Sex: Male

DRUGS (1)
  1. JANUMET [Suspect]
     Indication: DIABETES MELLITUS
     Route: 048
     Dates: start: 20080423, end: 20090101

REACTIONS (5)
  - ABDOMINAL PAIN UPPER [None]
  - DIARRHOEA [None]
  - INAPPROPRIATE SCHEDULE OF DRUG ADMINISTRATION [None]
  - PANCREATITIS [None]
  - VOMITING [None]
